FAERS Safety Report 21488847 (Version 1)
Quarter: 2022Q4

REPORT INFORMATION
  Report Type: Spontaneous
  Country: US (occurrence: US)
  Receive Date: 20221021
  Receipt Date: 20221021
  Transmission Date: 20230113
  Serious: Yes (Death, Other)
  Sender: FDA-Public Use
  Company Number: US-STRIDES ARCOLAB LIMITED-2022SP013593

PATIENT
  Age: 72 Year
  Sex: Female

DRUGS (4)
  1. PREDNISOLONE [Suspect]
     Active Substance: PREDNISOLONE
     Indication: Full blood count abnormal
     Dosage: 1 MILLIGRAM/KILOGRAM, UNKNOWN
     Route: 048
  2. CYCLOSPORINE [Suspect]
     Active Substance: CYCLOSPORINE
     Indication: Full blood count abnormal
     Dosage: 5 MILLIGRAM/KILOGRAM, BID
     Route: 065
  3. PEGFILGRASTIM [Suspect]
     Active Substance: PEGFILGRASTIM
     Indication: Full blood count abnormal
     Dosage: 6 MILLIGRAM, UNKNOWN
     Route: 065
  4. ELTROMBOPAG [Suspect]
     Active Substance: ELTROMBOPAG
     Indication: Full blood count abnormal
     Dosage: 50 MILLIGRAM PER DAY
     Route: 065

REACTIONS (4)
  - Shock [Fatal]
  - Cardio-respiratory arrest [Fatal]
  - Drug ineffective [Fatal]
  - Off label use [Unknown]
